FAERS Safety Report 21437774 (Version 2)
Quarter: 2022Q4

REPORT INFORMATION
  Report Type: Spontaneous
  Country: GB (occurrence: GB)
  Receive Date: 20221011
  Receipt Date: 20221123
  Transmission Date: 20230113
  Serious: Yes (Disabling, Other)
  Sender: FDA-Public Use
  Company Number: GB-MHRA-ADR 27336081

PATIENT
  Age: 68 Year
  Sex: Male

DRUGS (8)
  1. ATORVASTATIN [Suspect]
     Active Substance: ATORVASTATIN
     Indication: Product used for unknown indication
     Dosage: 40 MILLIGRAM, ONCE A DAY
     Route: 065
  2. ATORVASTATIN [Suspect]
     Active Substance: ATORVASTATIN
     Dosage: 80 MILLIGRAM, ONCE A DAY
     Route: 065
  3. ATORVASTATIN [Suspect]
     Active Substance: ATORVASTATIN
     Dosage: 20 MILLIGRAM, ONCE A DAY (BEDTIME)
     Route: 065
  4. FINASTERIDE [Suspect]
     Active Substance: FINASTERIDE
     Indication: Product used for unknown indication
     Dosage: UNK
     Route: 065
  5. TAMSULOSIN [Suspect]
     Active Substance: TAMSULOSIN
     Indication: Product used for unknown indication
     Dosage: UNK
     Route: 065
  6. TICAGRELOR [Suspect]
     Active Substance: TICAGRELOR
     Indication: Product used for unknown indication
     Dosage: 180 MILLIGRAM, TWO TIMES A DAY
     Route: 065
  7. ASPIRIN [Concomitant]
     Active Substance: ASPIRIN
     Indication: Product used for unknown indication
     Dosage: 75 MILLIGRAM, ONCE A DAY (MORNING)
     Route: 065
  8. ASPIRIN [Concomitant]
     Active Substance: ASPIRIN
     Dosage: MORNING
     Route: 065

REACTIONS (11)
  - Muscular weakness [Unknown]
  - Condition aggravated [Unknown]
  - Fatigue [Unknown]
  - Peripheral swelling [Unknown]
  - Insomnia [Unknown]
  - Skin tightness [Unknown]
  - Movement disorder [Unknown]
  - Abnormal weight gain [Unknown]
  - Pruritus [Unknown]
  - Depression [Unknown]
  - Pain in extremity [Unknown]
